FAERS Safety Report 15937552 (Version 1)
Quarter: 2019Q1

REPORT INFORMATION
  Report Type: Spontaneous
  Country: US (occurrence: US)
  Receive Date: 20190118
  Receipt Date: 20190118
  Transmission Date: 20190417
  Serious: Yes (Death)
  Sender: FDA-Public Use
  Company Number: None

PATIENT
  Age: 87 Year
  Sex: Female

DRUGS (2)
  1. VANCOMYCIN [Suspect]
     Active Substance: VANCOMYCIN
     Dosage: ?          QUANTITY:500 ML MILLILITRE(S);?
  2. MORPHINE [Suspect]
     Active Substance: MORPHINE
     Route: 048

REACTIONS (3)
  - Pulmonary oedema [None]
  - Physical product label issue [None]
  - Oedema peripheral [None]

NARRATIVE: CASE EVENT DATE: 20180321
